FAERS Safety Report 14585700 (Version 1)
Quarter: 2018Q1

REPORT INFORMATION
  Report Type: Spontaneous
  Country: PL (occurrence: PL)
  Receive Date: 20180301
  Receipt Date: 20180301
  Transmission Date: 20180509
  Serious: Yes (Hospitalization, Other)
  Sender: FDA-Public Use
  Company Number: PL-ASTELLAS-2018US008551

PATIENT
  Age: 56 Year
  Sex: Male

DRUGS (3)
  1. VALGANCICLOVIR. [Concomitant]
     Active Substance: VALGANCICLOVIR
     Indication: ANTIVIRAL PROPHYLAXIS
     Dosage: UNK UNK, UNKNOWN FREQ.
     Route: 042
  2. PROGRAF [Suspect]
     Active Substance: TACROLIMUS\TACROLIMUS ANHYDROUS
     Indication: RENAL TRANSPLANT
     Dosage: UNK UNK, UNKNOWN FREQ.
     Route: 065
  3. MYCOPHENOLATE MOFETIL. [Suspect]
     Active Substance: MYCOPHENOLATE MOFETIL
     Indication: RENAL TRANSPLANT
     Dosage: UNK UNK, UNKNOWN FREQ.
     Route: 065

REACTIONS (13)
  - Hydronephrosis [Unknown]
  - Dysuria [Unknown]
  - Altered state of consciousness [Unknown]
  - Urinary tract infection [Unknown]
  - Enterococcal infection [Unknown]
  - General physical health deterioration [Unknown]
  - Amylase increased [Unknown]
  - Klebsiella infection [Unknown]
  - Escherichia infection [Unknown]
  - Abdominal pain [Unknown]
  - Urine output decreased [Unknown]
  - Transplant dysfunction [Recovering/Resolving]
  - Immunosuppressant drug level increased [Unknown]
